FAERS Safety Report 7903024-2 (Version None)
Quarter: 2011Q4

REPORT INFORMATION
  Report Type: 
  Country: None (occurrence: None)
  Receive Date: 20111109
  Receipt Date: 20111102
  Transmission Date: 20120403
  Serious: Yes (Disabling)
  Sender: FDA-Public Use
  Company Number: DE-UCBSA-037995

PATIENT
  Sex: Male
  Weight: 78 kg

DRUGS (4)
  1. PREDNISOLONE [Concomitant]
     Indication: RHEUMATOID ARTHRITIS
     Dates: start: 20080101
  2. ARAVA [Concomitant]
     Indication: RHEUMATOID ARTHRITIS
     Dates: start: 20091209
  3. CERTOLIZUMAB PEGOL [Suspect]
     Indication: RHEUMATOID ARTHRITIS
     Dosage: 200 MG; NUMBER OF DOSES RECEIVED 9
     Route: 058
     Dates: start: 20110303, end: 20110621
  4. ASPIRIN [Concomitant]
     Indication: MYOCARDIAL INFARCTION
     Dates: start: 20100201

REACTIONS (1)
  - AGEUSIA [None]
